FAERS Safety Report 13849033 (Version 3)
Quarter: 2017Q3

REPORT INFORMATION
  Report Type: Spontaneous
  Country: US (occurrence: US)
  Receive Date: 20170809
  Receipt Date: 20170906
  Transmission Date: 20171127
  Serious: Yes (Other)
  Sender: FDA-Public Use
  Company Number: US-009507513-1708USA003767

PATIENT
  Age: 17 Year
  Sex: Female
  Weight: 51.25 kg

DRUGS (1)
  1. NEXPLANON [Suspect]
     Active Substance: ETONOGESTREL
     Dosage: UNK
     Route: 059
     Dates: start: 20150514, end: 20170803

REACTIONS (8)
  - Complication associated with device [Recovered/Resolved]
  - Migration of implanted drug [Recovered/Resolved]
  - Implant site paraesthesia [Recovered/Resolved]
  - Device deployment issue [Recovered/Resolved]
  - General anaesthesia [Unknown]
  - Surgery [Unknown]
  - Difficulty removing drug implant [Recovered/Resolved]
  - Device difficult to use [Recovered/Resolved]

NARRATIVE: CASE EVENT DATE: 20150514
